FAERS Safety Report 19406060 (Version 1)
Quarter: 2021Q2

REPORT INFORMATION
  Report Type: Spontaneous
  Country: GB (occurrence: GB)
  Receive Date: 20210611
  Receipt Date: 20210611
  Transmission Date: 20210717
  Serious: Yes (Other)
  Sender: FDA-Public Use
  Company Number: GB-ORGANON-O2106GBR000944

PATIENT
  Age: 31 Year
  Sex: Female
  Weight: 96 kg

DRUGS (8)
  1. FLUCLOXACILLIN [Concomitant]
     Active Substance: FLUCLOXACILLIN
     Dates: start: 20210426, end: 20210503
  2. FENBID [IBUPROFEN] [Concomitant]
     Dosage: AS NEEDED
     Dates: start: 20210604
  3. LANSOPRAZOLE. [Concomitant]
     Active Substance: LANSOPRAZOLE
     Dates: start: 20201029
  4. MIRTAZAPINE. [Suspect]
     Active Substance: MIRTAZAPINE
     Indication: DEPRESSED MOOD
     Dosage: AT NIGHT
     Dates: start: 20210312
  5. SERTRALINE [Concomitant]
     Active Substance: SERTRALINE HYDROCHLORIDE
     Dosage: TAKE ONE DAILY
     Dates: start: 20210518
  6. LYMECYCLINE [Concomitant]
     Active Substance: LYMECYCLINE
     Dates: start: 20210511
  7. MICROGYNON [ETHINYLESTRADIOL;FERROUS FUMARATE;LEVONORGESTREL] [Concomitant]
     Dosage: AS DIRECTED
     Dates: start: 20210312, end: 20210411
  8. BENZOYL PEROXIDE. [Concomitant]
     Active Substance: BENZOYL PEROXIDE
     Dosage: IN THE EVENING
     Dates: start: 20201029

REACTIONS (2)
  - Swelling face [Recovered/Resolved]
  - Lip swelling [Recovered/Resolved]
